FAERS Safety Report 9652500 (Version 1)
Quarter: 2013Q4

REPORT INFORMATION
  Report Type: Report from Study
  Country: JP (occurrence: JP)
  Receive Date: 20131029
  Receipt Date: 20131029
  Transmission Date: 20140711
  Serious: Yes (Other)
  Sender: FDA-Public Use
  Company Number: JP-GILEAD-2013-0086212

PATIENT
  Age: 55 Year
  Sex: Female

DRUGS (7)
  1. EMTRICITABINE/TENOFOVIR DISOPROXIL FUMARATE [Suspect]
     Indication: HIV INFECTION
     Dosage: 1 DF, QD
     Route: 048
     Dates: start: 20080212
  2. STOCRIN [Concomitant]
     Indication: HIV INFECTION
     Route: 048
     Dates: start: 20080212, end: 20080623
  3. NORVIR [Concomitant]
     Indication: HIV INFECTION
     Dosage: 100 MG, QD
     Route: 048
     Dates: start: 20110525
  4. NORVIR [Concomitant]
     Dosage: 200 MG, QD
     Route: 048
     Dates: start: 20080624, end: 20091005
  5. NORVIR [Concomitant]
     Dosage: 100 MG, QD
     Route: 048
     Dates: start: 20091006, end: 20110524
  6. REYATAZ [Concomitant]
     Indication: HIV INFECTION
     Dosage: 300 MG, QD
     Route: 048
     Dates: start: 20091006
  7. NORVIR [Concomitant]
     Indication: HIV INFECTION

REACTIONS (1)
  - Osteoporosis [Not Recovered/Not Resolved]
